FAERS Safety Report 6856260-0 (Version None)
Quarter: 2010Q2

REPORT INFORMATION
  Report Type: 
  Country: None (occurrence: None)
  Receive Date: 20100630
  Receipt Date: 20100325
  Transmission Date: 20101027
  Serious: No
  Sender: FDA-Public Use
  Company Number: 1000012761

PATIENT

DRUGS (1)
  1. BYSTOLIC [Suspect]
     Dosage: 2.5 MG (2.5 MG), ORAL; (10 MG), ORAL
     Route: 048

REACTIONS (7)
  - ARTHRALGIA [None]
  - HEART RATE DECREASED [None]
  - HYPOAESTHESIA [None]
  - MYALGIA [None]
  - OCULAR HYPERAEMIA [None]
  - PAIN IN EXTREMITY [None]
  - PERIPHERAL VASCULAR DISORDER [None]
